FAERS Safety Report 7731978-6 (Version None)
Quarter: 2011Q3

REPORT INFORMATION
  Report Type: 
  Country: None (occurrence: None)
  Receive Date: 20110906
  Receipt Date: 20101129
  Transmission Date: 20111222
  Serious: No
  Sender: FDA-Public Use
  Company Number: US-ABBOTT-09P-163-0609731-00

PATIENT
  Sex: Female

DRUGS (7)
  1. PRILOSEC [Concomitant]
     Indication: PRODUCT USED FOR UNKNOWN INDICATION
     Dates: start: 20000101
  2. VITAMIN B-12 [Concomitant]
     Indication: VITAMIN SUPPLEMENTATION
     Route: 050
  3. NIFEDIPINE [Concomitant]
     Indication: HYPERTENSION
     Dosage: DAILY
  4. LEVOTHROID [Concomitant]
     Indication: THYROIDECTOMY
  5. TRICOR [Suspect]
     Dates: start: 20050119, end: 20050801
  6. TRICOR [Suspect]
     Indication: BLOOD CHOLESTEROL INCREASED
     Dates: start: 20040614, end: 20050119
  7. AVAPRO [Concomitant]
     Indication: HYPERTENSION
     Dosage: DAILY

REACTIONS (2)
  - LIVER FUNCTION TEST ABNORMAL [None]
  - HEPATIC STEATOSIS [None]
